FAERS Safety Report 21424348 (Version 1)
Quarter: 2022Q4

REPORT INFORMATION
  Report Type: Spontaneous
  Country: DE (occurrence: DE)
  Receive Date: 20221007
  Receipt Date: 20221007
  Transmission Date: 20230113
  Serious: Yes (Hospitalization)
  Sender: FDA-Public Use
  Company Number: DE-ADRED-08246-02

PATIENT
  Age: 70 Year
  Sex: Male

DRUGS (6)
  1. XARELTO [Suspect]
     Active Substance: RIVAROXABAN
     Indication: Product used for unknown indication
     Dosage: 20 MG, PAUSE
     Route: 048
  2. TAMSULOSIN [Concomitant]
     Active Substance: TAMSULOSIN
     Dosage: 0.4 MG, OM
  3. TORSEMIDE [Concomitant]
     Active Substance: TORSEMIDE
     Dosage: 10 MG, OM
  4. SPIRONOLACTONE [Concomitant]
     Active Substance: SPIRONOLACTONE
     Dosage: 25 MG, OM
  5. METOPROLOL [Concomitant]
     Active Substance: METOPROLOL
     Dosage: 95 MG, OM
  6. RAMIPRIL [Concomitant]
     Active Substance: RAMIPRIL
     Dosage: 10 MG, OM

REACTIONS (9)
  - General physical health deterioration [Unknown]
  - Atrial fibrillation [Unknown]
  - Anaemia [Unknown]
  - Dyspnoea [Unknown]
  - Hyperglycaemia [Unknown]
  - Systemic infection [Unknown]
  - Condition aggravated [Unknown]
  - Internal haemorrhage [Unknown]
  - Renal impairment [Unknown]
